FAERS Safety Report 5072265-7 (Version None)
Quarter: 2006Q3

REPORT INFORMATION
  Report Type: 
  Country: None (occurrence: None)
  Receive Date: 20060710
  Receipt Date: 20051026
  Transmission Date: 20061208
  Serious: Yes (Hospitalization)
  Sender: FDA-Public Use
  Company Number: PHEH2005US09619

PATIENT
  Age: 64 Year
  Sex: Female

DRUGS (9)
  1. GLEEVEC [Suspect]
     Indication: PANCREATIC CARCINOMA
     Dosage: 200 MG, QD, ORAL
     Route: 048
     Dates: start: 20041101
  2. NEURONTIN [Concomitant]
  3. LANTUS [Concomitant]
  4. INSULIN [Concomitant]
  5. PREVACID [Concomitant]
  6. METHADONE HCL [Concomitant]
  7. METOPROLOL - SLOW RELEASE (METOPROLOL TARTRATE) [Concomitant]
  8. ZOLOFT [Concomitant]
  9. LASIX [Concomitant]

REACTIONS (10)
  - ANAEMIA [None]
  - DEPRESSION [None]
  - DIABETES MELLITUS INSULIN-DEPENDENT [None]
  - GASTROOESOPHAGEAL REFLUX DISEASE [None]
  - HYPERTENSION [None]
  - HYPOCALCAEMIA [None]
  - NEURALGIA [None]
  - OEDEMA [None]
  - RENAL CYST [None]
  - RENAL FAILURE [None]
